FAERS Safety Report 8513264-X (Version None)
Quarter: 2012Q3

REPORT INFORMATION
  Report Type: 
  Country: None (occurrence: None)
  Receive Date: 20120716
  Receipt Date: 20120702
  Transmission Date: 20120928
  Serious: Yes (Hospitalization)
  Sender: FDA-Public Use
  Company Number: GB-ELI_LILLY_AND_COMPANY-GB201207000267

PATIENT
  Age: 57 Year
  Sex: Female
  Weight: 78.92 kg

DRUGS (7)
  1. BYDUREON [Suspect]
     Indication: DIABETES MELLITUS
     Dosage: 2 MG, WEEKLY (1/W)
     Route: 058
     Dates: start: 20120524
  2. GLIMEPIRIDE [Concomitant]
  3. FOLIC ACID [Concomitant]
  4. METFORMIN HYDROCHLORIDE [Concomitant]
  5. PAROXETINE [Concomitant]
  6. RISPERIDONE [Concomitant]
  7. SIMVASTATIN [Concomitant]

REACTIONS (4)
  - RASH [None]
  - HEART RATE INCREASED [None]
  - INFECTION [None]
  - ERYTHEMA [None]
